FAERS Safety Report 4627678-1 (Version None)
Quarter: 2005Q2

REPORT INFORMATION
  Report Type: 
  Country: None (occurrence: None)
  Receive Date: 20050401
  Receipt Date: 20050401
  Transmission Date: 20051028
  Serious: Yes (Life-Threatening)
  Sender: FDA-Public Use
  Company Number: None

PATIENT
  Age: 56 Year
  Sex: Male

DRUGS (1)
  1. IRBESARTAN [Suspect]
     Indication: HYPERTENSION
     Dosage: 150MG QD ORAL
     Route: 048
     Dates: start: 20050222, end: 20050222

REACTIONS (3)
  - DRY MOUTH [None]
  - LOCAL SWELLING [None]
  - SWOLLEN TONGUE [None]
